FAERS Safety Report 9455562 (Version 2)
Quarter: 2013Q4

REPORT INFORMATION
  Report Type: Spontaneous
  Country: GB (occurrence: None)
  Receive Date: 20130808
  Receipt Date: 20131129
  Transmission Date: 20140711
  Serious: Yes (Death, Other)
  Sender: FDA-Public Use
  Company Number: AUR-APL-2013-06447

PATIENT
  Age: 68 Year
  Sex: Female

DRUGS (1)
  1. SERTRALINE [Suspect]
     Indication: PRODUCT USED FOR UNKNOWN INDICATION
     Dosage: 50 GM, 1 IN 1 D
     Dates: start: 20130325, end: 20130412

REACTIONS (7)
  - Agitation [None]
  - Depression [None]
  - Insomnia [None]
  - Completed suicide [None]
  - Asphyxia [None]
  - Suicidal ideation [None]
  - Completed suicide [None]
